FAERS Safety Report 5966462-3 (Version None)
Quarter: 2008Q4

REPORT INFORMATION
  Report Type: 
  Country: None (occurrence: None)
  Receive Date: 20081125
  Receipt Date: 20081114
  Transmission Date: 20090506
  Serious: Yes (Death, Life-Threatening)
  Sender: FDA-Public Use
  Company Number: JP-ROCHE-588659

PATIENT
  Sex: Male
  Weight: 44 kg

DRUGS (4)
  1. XELODA [Suspect]
     Indication: RECTAL CANCER
     Dosage: DRUG REPORTED AS: XELODA 300.
     Route: 048
     Dates: start: 20080428, end: 20080623
  2. XELODA [Suspect]
     Route: 048
     Dates: start: 20080707, end: 20080721
  3. XELODA [Suspect]
     Route: 048
     Dates: start: 20080828, end: 20080910
  4. UREA [Concomitant]
     Dosage: DRUG NAME: UREPEARL, NOTE: TAKEN AS NEEDED
     Route: 061

REACTIONS (4)
  - BLOOD BILIRUBIN INCREASED [None]
  - GASTROINTESTINAL HAEMORRHAGE [None]
  - ILEUS [None]
  - MUCOUS MEMBRANE DISORDER [None]
